FAERS Safety Report 8470852-7 (Version None)
Quarter: 2012Q2

REPORT INFORMATION
  Report Type: 
  Country: None (occurrence: None)
  Receive Date: 20120627
  Receipt Date: 20120618
  Transmission Date: 20120825
  Serious: Yes (Other)
  Sender: FDA-Public Use
  Company Number: JP-ASTELLAS-2012JP004515

PATIENT
  Sex: Female
  Weight: 55 kg

DRUGS (8)
  1. URITOS [Concomitant]
     Indication: HYPERTONIC BLADDER
     Dosage: 0.1 MG, BID
     Route: 048
     Dates: start: 20120420, end: 20120521
  2. ROCORNAL [Concomitant]
     Indication: ANGINA PECTORIS
     Dosage: 100 MG, TID
     Route: 048
  3. TRICHLORMETHIAZIDE [Concomitant]
     Indication: HYPERTENSION
     Dosage: 2 MG, UID/QD
     Route: 048
     Dates: start: 20100812
  4. VESICARE [Suspect]
     Indication: HYPERTONIC BLADDER
     Dosage: 2.5 MG, UID/QD
     Route: 048
     Dates: start: 20110428, end: 20120420
  5. KALLIDINOGENASE [Concomitant]
     Indication: ANGINA PECTORIS
     Dosage: 1 DF, TID
     Route: 048
  6. NEUQUINON [Concomitant]
     Dosage: UNK
     Route: 048
  7. SIGMART [Concomitant]
     Indication: ANGINA PECTORIS
     Dosage: 2.5 MG, TID
     Route: 048
  8. AMLODIPINE [Concomitant]
     Indication: HYPERTENSION
     Dosage: 5 MG, UID/QD
     Route: 048

REACTIONS (2)
  - VENTRICULAR TACHYCARDIA [None]
  - ELECTROCARDIOGRAM QT PROLONGED [None]
